FAERS Safety Report 9640180 (Version 1)
Quarter: 2013Q4

REPORT INFORMATION
  Report Type: Spontaneous
  Country: US (occurrence: US)
  Receive Date: 20131023
  Receipt Date: 20131023
  Transmission Date: 20140711
  Serious: No
  Sender: FDA-Public Use
  Company Number: US-PFIZER INC-2013300528

PATIENT
  Age: 51 Year
  Sex: Female
  Weight: 81.63 kg

DRUGS (6)
  1. LYRICA [Suspect]
     Indication: NEUROPATHY PERIPHERAL
     Dosage: 100 MG, 3X/DAY
     Dates: start: 201310
  2. NORCO [Concomitant]
     Indication: FIBROMYALGIA
     Dosage: 5 MG, 4X/DAY
  3. NORCO [Concomitant]
     Indication: INTERVERTEBRAL DISC DEGENERATION
  4. SOMA [Concomitant]
     Indication: FIBROMYALGIA
     Dosage: 350 MG, 4X/DAY
  5. SOMA [Concomitant]
     Indication: INTERVERTEBRAL DISC DEGENERATION
  6. LISINOPRIL W/HYDROCHLOROTHIAZIDE [Concomitant]
     Indication: HYPERTENSION
     Dosage: LISINOPRIL 10 MG/HYDROCHLOROTHIAZIDE 12.5 MG, 1X/DAY

REACTIONS (2)
  - Drug ineffective [Unknown]
  - Drug dispensing error [Unknown]
